FAERS Safety Report 12055845 (Version 1)
Quarter: 2016Q1

REPORT INFORMATION
  Report Type: Spontaneous
  Country: US (occurrence: US)
  Receive Date: 20160209
  Receipt Date: 20160209
  Transmission Date: 20160526
  Serious: Yes (Hospitalization, Other)
  Sender: FDA-Public Use
  Company Number: US-MEDTRONIC-1047541

PATIENT
  Age: 42 Year
  Sex: Male

DRUGS (4)
  1. LIORESAL [Suspect]
     Active Substance: BACLOFEN
     Indication: MUSCLE SPASTICITY
     Route: 037
  2. DETROL [Suspect]
     Active Substance: TOLTERODINE TARTRATE
  3. FAMOTIDINE. [Suspect]
     Active Substance: FAMOTIDINE
  4. ALBUTEROL. [Suspect]
     Active Substance: ALBUTEROL

REACTIONS (6)
  - Overdose [Unknown]
  - Altered state of consciousness [Unknown]
  - Hyporesponsive to stimuli [Unknown]
  - Loss of consciousness [Unknown]
  - Heart rate decreased [Unknown]
  - Implant site extravasation [Unknown]

NARRATIVE: CASE EVENT DATE: 20160201
